FAERS Safety Report 8495006-X (Version None)
Quarter: 2012Q3

REPORT INFORMATION
  Report Type: 
  Country: None (occurrence: None)
  Receive Date: 20120709
  Receipt Date: 20120628
  Transmission Date: 20120928
  Serious: No
  Sender: FDA-Public Use
  Company Number: CA-JNJFOC-20120700467

PATIENT
  Sex: Female
  Weight: 66.5 kg

DRUGS (12)
  1. SULINDAC [Concomitant]
     Route: 065
  2. ECTOSONE [Concomitant]
     Route: 065
  3. LEVOTHYROXINE SODIUM [Concomitant]
     Route: 065
  4. CLINDAMYCIN [Suspect]
     Indication: INFECTION
     Route: 065
  5. NASONEX [Concomitant]
     Route: 065
  6. METHOTREXATE [Concomitant]
     Route: 065
  7. FOLIC ACID [Concomitant]
     Route: 065
  8. PANTOPRAZOLE [Concomitant]
     Route: 065
  9. REMICADE [Suspect]
     Indication: RHEUMATOID ARTHRITIS
     Route: 042
     Dates: start: 20101008
  10. CRESTOR [Concomitant]
     Route: 065
  11. ALPRAZ [Concomitant]
     Route: 065
  12. OXYCET [Concomitant]
     Route: 065

REACTIONS (5)
  - FUNGAL INFECTION [None]
  - RASH [None]
  - FACIAL PAIN [None]
  - SINUS HEADACHE [None]
  - URTICARIA [None]
